FAERS Safety Report 15327127 (Version 5)
Quarter: 2019Q3

REPORT INFORMATION
  Report Type: Spontaneous
  Country: US (occurrence: US)
  Receive Date: 20180828
  Receipt Date: 20190828
  Transmission Date: 20191004
  Serious: No
  Sender: FDA-Public Use
  Company Number: US-PFIZER INC-2018260029

PATIENT
  Age: 77 Year
  Sex: Female
  Weight: 79 kg

DRUGS (2)
  1. IBRANCE [Suspect]
     Active Substance: PALBOCICLIB
     Indication: BREAST CANCER FEMALE
     Dosage: 125 MG, CYCLIC (FOR 21 DAYS AND 7 DAYS OFF)
  2. IBRANCE [Suspect]
     Active Substance: PALBOCICLIB
     Dosage: 100 MG, CYCLIC; (FOR 14 DAYS ON AND 14 DAYS OFF)

REACTIONS (1)
  - White blood cell count decreased [Unknown]
